FAERS Safety Report 18472713 (Version 2)
Quarter: 2020Q4

REPORT INFORMATION
  Report Type: Spontaneous
  Country: BR (occurrence: BR)
  Receive Date: 20201106
  Receipt Date: 20201230
  Transmission Date: 20210114
  Serious: Yes (Other)
  Sender: FDA-Public Use
  Company Number: BR-PFIZER INC-2020428855

PATIENT
  Age: 33 Year
  Sex: Male

DRUGS (1)
  1. METHOTREXATE SODIUM. [Suspect]
     Active Substance: METHOTREXATE SODIUM
     Indication: DIFFUSE LARGE B-CELL LYMPHOMA
     Dosage: 12 MG (12 MG IN THE FOUR FIRST CYCLES)
     Route: 037

REACTIONS (3)
  - Aphasia [Recovering/Resolving]
  - Leukoencephalopathy [Recovering/Resolving]
  - Coordination abnormal [Recovering/Resolving]
